FAERS Safety Report 25990429 (Version 1)
Quarter: 2025Q4

REPORT INFORMATION
  Report Type: Spontaneous
  Country: TR (occurrence: TR)
  Receive Date: 20251103
  Receipt Date: 20251103
  Transmission Date: 20260118
  Serious: Yes (Other)
  Sender: PFIZER
  Company Number: TR-PFIZER INC-PV202500127988

PATIENT
  Age: 61 Year
  Sex: Female

DRUGS (1)
  1. ELREXFIO [Suspect]
     Active Substance: ELRANATAMAB-BCMM
     Dosage: UNK UNK, CYCLIC
     Dates: start: 202506

REACTIONS (4)
  - Pneumonia cytomegaloviral [Unknown]
  - Thrombocytopenia [Unknown]
  - Neutropenia [Unknown]
  - Humoral immune defect [Unknown]

NARRATIVE: CASE EVENT DATE: 20250101
